FAERS Safety Report 6788427-4 (Version None)
Quarter: 2010Q2

REPORT INFORMATION
  Report Type: 
  Country: None (occurrence: None)
  Receive Date: 20100623
  Receipt Date: 20080313
  Transmission Date: 20101027
  Serious: No
  Sender: FDA-Public Use
  Company Number: US-PFIZER INC-2008023531

PATIENT
  Sex: Female
  Weight: 50 kg

DRUGS (3)
  1. DEPO-PROVERA SUSPENSION/INJ [Suspect]
     Indication: CONTRACEPTION
     Dates: start: 20070401
  2. KLONOPIN [Concomitant]
  3. XANAX [Concomitant]

REACTIONS (8)
  - ABDOMINAL DISTENSION [None]
  - FATIGUE [None]
  - HEADACHE [None]
  - HEART RATE INCREASED [None]
  - IRRITABILITY [None]
  - MALAISE [None]
  - MUSCLE SPASMS [None]
  - NAUSEA [None]
